FAERS Safety Report 5571687-5 (Version None)
Quarter: 2007Q4

REPORT INFORMATION
  Report Type: 
  Country: None (occurrence: None)
  Receive Date: 20071221
  Receipt Date: 20071218
  Transmission Date: 20080405
  Serious: Yes (Death)
  Sender: FDA-Public Use
  Company Number: A0563243A

PATIENT
  Age: 14 Year
  Sex: Male

DRUGS (3)
  1. PAXIL CR [Suspect]
     Indication: DEPRESSION
     Dosage: 25MG PER DAY
     Route: 048
     Dates: start: 20020628, end: 20031201
  2. PAXIL [Suspect]
     Dates: start: 20020501
  3. XANAX [Concomitant]

REACTIONS (5)
  - ASPHYXIA [None]
  - BIPOLAR DISORDER [None]
  - COMPLETED SUICIDE [None]
  - HYPOXIC ENCEPHALOPATHY [None]
  - LEGAL PROBLEM [None]
